FAERS Safety Report 6221766-4 (Version None)
Quarter: 2009Q2

REPORT INFORMATION
  Report Type: 
  Country: None (occurrence: None)
  Receive Date: 20090608
  Receipt Date: 20090529
  Transmission Date: 20091009
  Serious: Yes (Hospitalization)
  Sender: FDA-Public Use
  Company Number: KV200900630

PATIENT
  Age: 52 Year
  Sex: Female

DRUGS (3)
  1. ISOSORBIDE MONONITRATE [Suspect]
     Indication: ANGINA PECTORIS
     Dosage: 30 MG; QD, ORAL
     Route: 048
     Dates: start: 20071101, end: 20080501
  2. ISOSORBIDE MONONITRATE [Suspect]
     Indication: VASODILATION PROCEDURE
     Dosage: 30 MG; QD, ORAL
     Route: 048
     Dates: start: 20071101, end: 20080501
  3. GABAPENTIN [Concomitant]

REACTIONS (8)
  - DIZZINESS [None]
  - EYE DISORDER [None]
  - HEAD DISCOMFORT [None]
  - INTRACRANIAL ANEURYSM [None]
  - MALAISE [None]
  - PAIN [None]
  - PAIN IN EXTREMITY [None]
  - PARAESTHESIA [None]
